FAERS Safety Report 13038631 (Version 6)
Quarter: 2019Q1

REPORT INFORMATION
  Report Type: Report from Study
  Country: JP (occurrence: JP)
  Receive Date: 20161219
  Receipt Date: 20190329
  Transmission Date: 20190417
  Serious: Yes (Other)
  Sender: FDA-Public Use
  Company Number: JP-AEGERION PHARMACEUTICAL INC.-AEGR002391

PATIENT

DRUGS (2)
  1. METRELEPTIN SHIONOGI [Suspect]
     Active Substance: METRELEPTIN
     Indication: PRODUCT USED FOR UNKNOWN INDICATION
     Dosage: 3.83 MG, QD
     Route: 058
     Dates: start: 20101122, end: 20130911
  2. METRELEPTIN SHIONOGI [Suspect]
     Active Substance: METRELEPTIN
     Dosage: 3.83 MG, QD
     Route: 058
     Dates: start: 20130912

REACTIONS (4)
  - Intentional product misuse [Unknown]
  - Metabolic disorder [Recovering/Resolving]
  - Hepatic steatosis [Recovered/Resolved]
  - Metabolic disorder [Not Recovered/Not Resolved]

NARRATIVE: CASE EVENT DATE: 20150925
